FAERS Safety Report 9578779 (Version 1)
Quarter: 2013Q4

REPORT INFORMATION
  Report Type: Spontaneous
  Country: US (occurrence: US)
  Receive Date: 20131001
  Receipt Date: 20131001
  Transmission Date: 20140711
  Serious: No
  Sender: FDA-Public Use
  Company Number: US-AMGEN-USASP2013015484

PATIENT
  Sex: Female

DRUGS (7)
  1. ENBREL [Suspect]
     Indication: RHEUMATOID ARTHRITIS
     Dosage: 50 MG, QWK
     Route: 058
  2. AGGRENOX [Concomitant]
     Dosage: 25-200 MG,
  3. OXYBUTYNIN [Concomitant]
     Dosage: 10 MG, UNK, ER
  4. MELOXICAM [Concomitant]
     Dosage: 7.5 MG, UNK
  5. PREDNISONE [Concomitant]
     Dosage: 5 MG, UNK
  6. RESTASIS [Concomitant]
     Dosage: 0.05 %, UNK
  7. LISINOPRIL [Concomitant]
     Dosage: 10 MG, UNK

REACTIONS (2)
  - Rheumatoid arthritis [Unknown]
  - Injection site pruritus [Unknown]
